FAERS Safety Report 14996106 (Version 5)
Quarter: 2018Q3

REPORT INFORMATION
  Report Type: Spontaneous
  Country: IT (occurrence: IT)
  Receive Date: 20180611
  Receipt Date: 20180829
  Transmission Date: 20181010
  Serious: Yes (Other)
  Sender: FDA-Public Use
  Company Number: IT-ROCHE-2136529

PATIENT
  Age: 16 Year
  Sex: Female

DRUGS (15)
  1. RITUXIMAB. [Suspect]
     Active Substance: RITUXIMAB
     Indication: BONE MARROW CONDITIONING REGIMEN
  2. FLUDARABINE [Suspect]
     Active Substance: FLUDARABINE PHOSPHATE
     Indication: BONE MARROW CONDITIONING REGIMEN
  3. ANTITHYMOCYTE GLOBULIN [Suspect]
     Active Substance: THYMOCYTE IMMUNE GLOBULIN NOS
     Indication: STEM CELL TRANSPLANT
  4. TREOSULFAN [Suspect]
     Active Substance: TREOSULFAN
     Indication: STEM CELL TRANSPLANT
  5. AZATHIOPRINE. [Concomitant]
     Active Substance: AZATHIOPRINE
     Indication: AUTOIMMUNE HEPATITIS
     Route: 065
  6. RITUXIMAB. [Suspect]
     Active Substance: RITUXIMAB
     Indication: STEM CELL TRANSPLANT
  7. TREOSULFAN [Suspect]
     Active Substance: TREOSULFAN
     Indication: PROPHYLAXIS AGAINST TRANSPLANT REJECTION
     Route: 065
  8. THIOTEPA. [Suspect]
     Active Substance: THIOTEPA
     Indication: BONE MARROW CONDITIONING REGIMEN
  9. RITUXIMAB. [Suspect]
     Active Substance: RITUXIMAB
     Indication: PROPHYLAXIS AGAINST TRANSPLANT REJECTION
     Route: 065
  10. TREOSULFAN [Suspect]
     Active Substance: TREOSULFAN
     Indication: BONE MARROW CONDITIONING REGIMEN
  11. THIOTEPA. [Suspect]
     Active Substance: THIOTEPA
     Indication: PROPHYLAXIS AGAINST TRANSPLANT REJECTION
     Route: 065
  12. ANTITHYMOCYTE GLOBULIN [Suspect]
     Active Substance: THYMOCYTE IMMUNE GLOBULIN NOS
     Indication: PROPHYLAXIS AGAINST TRANSPLANT REJECTION
     Route: 065
  13. THIOTEPA. [Suspect]
     Active Substance: THIOTEPA
     Indication: STEM CELL TRANSPLANT
  14. FLUDARABINE [Suspect]
     Active Substance: FLUDARABINE PHOSPHATE
     Indication: PROPHYLAXIS AGAINST TRANSPLANT REJECTION
     Route: 065
  15. FLUDARABINE [Suspect]
     Active Substance: FLUDARABINE PHOSPHATE
     Indication: STEM CELL TRANSPLANT

REACTIONS (6)
  - Febrile neutropenia [Recovered/Resolved]
  - Off label use [Unknown]
  - Anaemia [Recovered/Resolved]
  - Intentional product use issue [Unknown]
  - Thrombocytopenia [Recovered/Resolved]
  - Mucosal inflammation [Recovered/Resolved]
